FAERS Safety Report 24697046 (Version 1)
Quarter: 2024Q4

REPORT INFORMATION
  Report Type: Spontaneous
  Country: PL (occurrence: PL)
  Receive Date: 20241204
  Receipt Date: 20241204
  Transmission Date: 20250114
  Serious: Yes (Other)
  Sender: PFIZER
  Company Number: PL-UCBSA-2023056563

PATIENT
  Sex: Female

DRUGS (8)
  1. LEVETIRACETAM [Suspect]
     Active Substance: LEVETIRACETAM
     Indication: Severe myoclonic epilepsy of infancy
     Dosage: UNK
  2. FENFLURAMINE HYDROCHLORIDE [Suspect]
     Active Substance: FENFLURAMINE HYDROCHLORIDE
     Indication: Severe myoclonic epilepsy of infancy
     Dosage: UNK
     Dates: start: 202303
  3. THIOPENTAL [Concomitant]
     Active Substance: THIOPENTAL
     Dosage: UNK
  4. STIRIPENTOL [Concomitant]
     Active Substance: STIRIPENTOL
     Dosage: UNK
  5. MIDAZOLAM HYDROCHLORIDE [Concomitant]
     Active Substance: MIDAZOLAM HYDROCHLORIDE
     Indication: Petit mal epilepsy
     Dosage: UNK
  6. CLOBAZAM [Concomitant]
     Active Substance: CLOBAZAM
     Dosage: UNK
  7. RELSED [Concomitant]
     Dosage: UNK
  8. VALPROIC ACID [Concomitant]
     Active Substance: VALPROIC ACID
     Dosage: UNK

REACTIONS (13)
  - Seizure [Unknown]
  - Hemiplegia [Unknown]
  - Generalised tonic-clonic seizure [Unknown]
  - Liver injury [Unknown]
  - Petit mal epilepsy [Unknown]
  - Epilepsy [Unknown]
  - Postictal paralysis [Unknown]
  - Clonic convulsion [Unknown]
  - Myoclonus [Unknown]
  - Oxygen saturation decreased [Unknown]
  - Decreased appetite [Recovered/Resolved]
  - Drug ineffective for unapproved indication [Unknown]
  - Off label use [Unknown]
